FAERS Safety Report 23029818 (Version 3)
Quarter: 2023Q4

REPORT INFORMATION
  Report Type: Spontaneous
  Country: FR (occurrence: FR)
  Receive Date: 20231004
  Receipt Date: 20231228
  Transmission Date: 20240110
  Serious: Yes (Death, Other)
  Sender: FDA-Public Use
  Company Number: None

PATIENT
  Age: 79 Year
  Sex: Female
  Weight: 79 kg

DRUGS (9)
  1. VENETOCLAX [Suspect]
     Active Substance: VENETOCLAX
     Indication: Acute myeloid leukaemia
     Route: 048
     Dates: start: 20230825, end: 20230826
  2. VENETOCLAX [Suspect]
     Active Substance: VENETOCLAX
     Indication: Acute myeloid leukaemia
     Dosage: TIME INTERVAL: TOTAL
     Route: 048
     Dates: start: 20230827, end: 20230827
  3. VENETOCLAX [Suspect]
     Active Substance: VENETOCLAX
     Indication: Acute myeloid leukaemia
     Route: 048
     Dates: start: 20230823, end: 20230824
  4. LEVOFLOXACIN [Suspect]
     Active Substance: LEVOFLOXACIN
     Indication: Sepsis
     Dosage: 500 MG 2 FOIS PAR JOUR
     Route: 048
     Dates: start: 20230820, end: 20230825
  5. VIDAZA [Suspect]
     Active Substance: AZACITIDINE
     Indication: Acute myeloid leukaemia
     Dosage: 70MG 2 TIMES PER DAY?VIDAZA 100 MG, POWDER FOR SUSPENSION FOR INJECTION
     Route: 058
     Dates: start: 20230823, end: 20230827
  6. VANCOMYCIN [Suspect]
     Active Substance: VANCOMYCIN
     Indication: Sepsis
     Route: 042
     Dates: start: 20230820, end: 20230827
  7. ONDANSETRON [Suspect]
     Active Substance: ONDANSETRON
     Indication: Prophylaxis of nausea and vomiting
     Route: 042
     Dates: start: 20230820, end: 20230827
  8. CASPOFUNGIN [Suspect]
     Active Substance: CASPOFUNGIN
     Indication: Systemic candida
     Route: 042
     Dates: start: 20230820, end: 20230827
  9. SPIRAMYCIN [Suspect]
     Active Substance: SPIRAMYCIN
     Indication: Sepsis
     Dosage: 3 MUI 3 TIMES PER DAY?ROVAMYCINE 3 MILLIONS U I, FILM COATED TABLET?UNIT DOSE- 9 10^6 IU
     Route: 042
     Dates: start: 20230825, end: 20230828

REACTIONS (2)
  - Hyperbilirubinaemia [Fatal]
  - Jaundice [Fatal]

NARRATIVE: CASE EVENT DATE: 20230828
